FAERS Safety Report 8605175-6 (Version None)
Quarter: 2012Q3

REPORT INFORMATION
  Report Type: 
  Country: None (occurrence: None)
  Receive Date: 20120820
  Receipt Date: 20120813
  Transmission Date: 20120928
  Serious: Yes (Other)
  Sender: FDA-Public Use
  Company Number: JP-MERCK KGAA-7118712

PATIENT
  Sex: Male
  Weight: 61 kg

DRUGS (4)
  1. IRINOTECAN HYDROCHLORIDE [Concomitant]
     Indication: RECTAL CANCER
     Dosage: INCLUDING SKIPPED WEEK
     Route: 042
     Dates: start: 20090529, end: 20091119
  2. LEUCOVORIN CALCIUM [Concomitant]
     Indication: RECTAL CANCER
     Dosage: INCLUDING SKIPPED WEEK
     Route: 042
     Dates: start: 20090529, end: 20091119
  3. FLUOROURACIL [Concomitant]
     Indication: RECTAL CANCER
     Dosage: INCLUDING SKIPPED WEEK
     Route: 042
     Dates: start: 20090529, end: 20091119
  4. ERBITUX [Suspect]
     Indication: RECTAL CANCER
     Dosage: INCLUDING SKIPPED WEEK
     Route: 042
     Dates: start: 20090529, end: 20091119

REACTIONS (9)
  - HYPERKALAEMIA [None]
  - STOMATITIS [None]
  - NEUTROPHIL COUNT DECREASED [None]
  - HYPOMAGNESAEMIA [None]
  - NEUROPATHY PERIPHERAL [None]
  - FATIGUE [None]
  - DERMATITIS BULLOUS [None]
  - DIARRHOEA [None]
  - PARONYCHIA [None]
